FAERS Safety Report 15797215 (Version 2)
Quarter: 2019Q1

REPORT INFORMATION
  Report Type: Spontaneous
  Country: US (occurrence: US)
  Receive Date: 20190108
  Receipt Date: 20190302
  Transmission Date: 20190417
  Serious: No
  Sender: FDA-Public Use
  Company Number: US-JNJFOC-20181226129

PATIENT
  Age: 6 Month
  Sex: Male
  Weight: 9.98 kg

DRUGS (2)
  1. MOTRIN INFANTS [Suspect]
     Active Substance: IBUPROFEN
     Indication: TEETHING
     Route: 048
     Dates: start: 201812, end: 20181218
  2. MOTRIN INFANTS [Suspect]
     Active Substance: IBUPROFEN
     Indication: EAR PAIN
     Route: 048
     Dates: start: 201812, end: 20181218

REACTIONS (5)
  - Vomiting [Not Recovered/Not Resolved]
  - Malaise [Not Recovered/Not Resolved]
  - Constipation [Not Recovered/Not Resolved]
  - Hypophagia [Not Recovered/Not Resolved]
  - Product contamination [Unknown]

NARRATIVE: CASE EVENT DATE: 201812
